FAERS Safety Report 25255900 (Version 2)
Quarter: 2025Q2

REPORT INFORMATION
  Report Type: Spontaneous
  Country: ES (occurrence: ES)
  Receive Date: 20250430
  Receipt Date: 20250509
  Transmission Date: 20250716
  Serious: Yes (Hospitalization)
  Sender: PFIZER
  Company Number: ES-PFIZER INC-PV202500050239

PATIENT
  Age: 85 Year
  Sex: Female
  Weight: 63 kg

DRUGS (11)
  1. LORLATINIB [Suspect]
     Active Substance: LORLATINIB
     Indication: Lung carcinoma cell type unspecified stage IV
     Dosage: 100 MG
     Route: 048
     Dates: start: 20240827, end: 20241022
  2. LORLATINIB [Suspect]
     Active Substance: LORLATINIB
     Dosage: 75 MG
     Route: 048
     Dates: start: 202410, end: 20250424
  3. LORLATINIB [Suspect]
     Active Substance: LORLATINIB
     Dosage: 50 MG, DAILY
     Route: 048
     Dates: start: 202504
  4. PREDNISONE [Concomitant]
     Active Substance: PREDNISONE
     Indication: Respiratory disorder
     Dosage: 10 MG, DAILY
  5. FUROSEMIDE [Concomitant]
     Active Substance: FUROSEMIDE
     Indication: Oedema
     Dosage: 40 MG, EVERY 48 HOURS
  6. CLOPIDOGREL [Concomitant]
     Active Substance: CLOPIDOGREL BISULFATE
     Indication: Supra-aortic trunk stenosis
     Dosage: 75 MG, DAILY
  7. OLMESARTAN [Concomitant]
     Active Substance: OLMESARTAN
     Indication: Hypertension
     Dosage: 10 MG, DAILY
  8. ROSUVASTATINE/EZETIMIBE [Concomitant]
     Indication: Hypercholesterolaemia
     Dosage: 1 DF, DAILY
  9. BUDESONIDE\FORMOTEROL\GLYCOPYRRONIUM [Concomitant]
     Active Substance: BUDESONIDE\FORMOTEROL\GLYCOPYRRONIUM
     Indication: Chronic obstructive pulmonary disease
     Dosage: 1 DF, 2X/DAY
  10. BUDESONIDE\FORMOTEROL\GLYCOPYRRONIUM [Concomitant]
     Active Substance: BUDESONIDE\FORMOTEROL\GLYCOPYRRONIUM
     Indication: Respiratory disorder
  11. VENTOLIN [Concomitant]
     Active Substance: ALBUTEROL SULFATE
     Indication: Respiratory disorder
     Dosage: 100 UG, 3X/DAY

REACTIONS (5)
  - Alveolitis [Unknown]
  - Respiratory disorder [Recovering/Resolving]
  - Bronchitis [Recovering/Resolving]
  - Chronic respiratory disease [Not Recovered/Not Resolved]
  - Oedema [Unknown]

NARRATIVE: CASE EVENT DATE: 20240101
